FAERS Safety Report 11030943 (Version 1)
Quarter: 2015Q2

REPORT INFORMATION
  Report Type: Report from Study
  Country: CA (occurrence: None)
  Receive Date: 20150413
  Receipt Date: 20150413
  Transmission Date: 20150821
  Serious: Yes (Hospitalization, Other)
  Sender: FDA-Public Use
  Company Number: 2815889

PATIENT
  Age: 67 Year
  Sex: Female

DRUGS (11)
  1. METFORMIN [Concomitant]
     Active Substance: METFORMIN HYDROCHLORIDE
  2. CIPRO /00697201/ [Suspect]
     Active Substance: CIPROFLOXACIN
     Indication: KIDNEY INFECTION
     Dosage: (NOT OTHERWISE SPECIFIED)
     Route: 042
  3. MAVIK [Suspect]
     Active Substance: TRANDOLAPRIL
     Indication: HYPERTENSION
  4. SPIRIVA [Concomitant]
     Active Substance: TIOTROPIUM BROMIDE MONOHYDRATE
  5. CIPRO /00697201/ [Suspect]
     Active Substance: CIPROFLOXACIN
     Indication: SEPTIC SHOCK
     Dosage: (NOT OTHERWISE SPECIFIED)
     Route: 042
  6. CALCIUM [Concomitant]
     Active Substance: CALCIUM
  7. GABAPENTIN. [Concomitant]
     Active Substance: GABAPENTIN
  8. CEFTRIAXONE SODIUM. [Suspect]
     Active Substance: CEFTRIAXONE SODIUM
     Indication: KIDNEY INFECTION
     Dosage: (NOT OTHERWISE SPECIFIED)
     Route: 042
  9. ROSUVASTATIN [Concomitant]
     Active Substance: ROSUVASTATIN
  10. CEFTRIAXONE SODIUM. [Suspect]
     Active Substance: CEFTRIAXONE SODIUM
     Indication: SEPTIC SHOCK
     Dosage: (NOT OTHERWISE SPECIFIED)
     Route: 042
  11. QUININE [Concomitant]
     Active Substance: QUININE

REACTIONS (6)
  - Chills [None]
  - Malaise [None]
  - Blood electrolytes decreased [None]
  - Septic shock [None]
  - Seizure [None]
  - Kidney infection [None]
